FAERS Safety Report 10943766 (Version 2)
Quarter: 2015Q2

REPORT INFORMATION
  Report Type: Spontaneous
  Country: US (occurrence: US)
  Receive Date: 20150322
  Receipt Date: 20150526
  Transmission Date: 20150821
  Serious: No
  Sender: FDA-Public Use
  Company Number: US-JNJFOC-20141110882

PATIENT
  Sex: Female

DRUGS (1)
  1. RISPERDAL [Suspect]
     Active Substance: RISPERIDONE
     Indication: ANXIETY
     Dosage: 0.25MG IN MORNING AND ANOTHER HALF AT NIGHT
     Route: 048
     Dates: start: 2005, end: 201406

REACTIONS (2)
  - Product use issue [Unknown]
  - Oral mucosal discolouration [Not Recovered/Not Resolved]

NARRATIVE: CASE EVENT DATE: 2014
